FAERS Safety Report 8673464 (Version 5)
Quarter: 2013Q1

REPORT INFORMATION
  Report Type: Spontaneous
  Country: US (occurrence: US)
  Receive Date: 20120719
  Receipt Date: 20130312
  Transmission Date: 20140127
  Serious: Yes (Other)
  Sender: FDA-Public Use
  Company Number: US-BAYER-2012-071569

PATIENT
  Age: 36 Year
  Sex: Female

DRUGS (1)
  1. MIRENA [Suspect]
     Indication: CONTRACEPTION
     Dosage: 20 MCG/24HR, CONT
     Route: 015
     Dates: start: 200705, end: 201205

REACTIONS (9)
  - Device dislocation [None]
  - Device difficult to use [None]
  - Procedural pain [None]
  - Uterine cervix stenosis [None]
  - Scar [None]
  - Vaginal haemorrhage [None]
  - Device difficult to use [None]
  - Post procedural discomfort [None]
  - Procedural complication [None]
